FAERS Safety Report 25445579 (Version 2)
Quarter: 2025Q3

REPORT INFORMATION
  Report Type: Spontaneous
  Country: CA (occurrence: CA)
  Receive Date: 20250617
  Receipt Date: 20250722
  Transmission Date: 20251021
  Serious: Yes (Hospitalization, Other)
  Sender: PFIZER
  Company Number: CA-PFIZER INC-202500115672

PATIENT
  Age: 68 Year
  Sex: Male

DRUGS (8)
  1. VELSIPITY [Suspect]
     Active Substance: ETRASIMOD ARGININE
     Indication: Colitis ulcerative
     Dates: start: 202504
  2. VELSIPITY [Suspect]
     Active Substance: ETRASIMOD ARGININE
     Dosage: 2 MG, 1X/DAY
     Route: 048
     Dates: start: 20250501
  3. VELSIPITY [Suspect]
     Active Substance: ETRASIMOD ARGININE
     Dosage: 2 MG, DAILY
     Route: 048
     Dates: start: 202505
  4. MESALAMINE [Concomitant]
     Active Substance: MESALAMINE
     Dosage: 4.8 G, DAILY
     Route: 048
  5. NYSTATIN [Concomitant]
     Active Substance: NYSTATIN
     Route: 048
  6. PREDNISONE [Concomitant]
     Active Substance: PREDNISONE
     Dates: start: 20250308
  7. PREDNISONE [Concomitant]
     Active Substance: PREDNISONE
     Dosage: 40 MG, DAILY, WITH WEEKLY TAPER
     Route: 048
  8. PREDNISONE [Concomitant]
     Active Substance: PREDNISONE
     Dosage: 5 MG, DAILY (TAPERING)
     Route: 048

REACTIONS (7)
  - Diarrhoea haemorrhagic [Recovered/Resolved]
  - Condition aggravated [Recovered/Resolved]
  - Dehydration [Unknown]
  - Acute kidney injury [Recovering/Resolving]
  - Iron deficiency anaemia [Unknown]
  - Fatigue [Unknown]
  - Asthenia [Unknown]

NARRATIVE: CASE EVENT DATE: 20250101
